FAERS Safety Report 11723425 (Version 1)
Quarter: 2015Q4

REPORT INFORMATION
  Report Type: Spontaneous
  Country: JP (occurrence: JP)
  Receive Date: 20151111
  Receipt Date: 20151111
  Transmission Date: 20160304
  Serious: Yes (Other)
  Sender: FDA-Public Use
  Company Number: PHJP2015JP019515

PATIENT
  Age: 70 Year
  Sex: Male

DRUGS (3)
  1. PAZOPANIB [Suspect]
     Active Substance: PAZOPANIB
     Indication: RENAL CELL CARCINOMA
     Dosage: UNK
     Route: 048
     Dates: start: 201501
  2. PAZOPANIB [Suspect]
     Active Substance: PAZOPANIB
     Dosage: 200 MG, QOD
     Route: 048
  3. PAZOPANIB [Suspect]
     Active Substance: PAZOPANIB
     Dosage: 200 MG, QD
     Route: 048

REACTIONS (1)
  - Hepatic function abnormal [Recovered/Resolved]
